FAERS Safety Report 20681928 (Version 1)
Quarter: 2022Q2

REPORT INFORMATION
  Report Type: Report from Study
  Country: DE (occurrence: DE)
  Receive Date: 20220407
  Receipt Date: 20220407
  Transmission Date: 20220721
  Serious: Yes (Hospitalization, Other)
  Sender: FDA-Public Use
  Company Number: DE-CELGENE-DEU-20210807569

PATIENT
  Age: 75 Year
  Sex: Male
  Weight: 63.5 kg

DRUGS (28)
  1. ABRAXANE [Suspect]
     Active Substance: PACLITAXEL
     Indication: Squamous cell carcinoma of lung
     Dosage: FREQUENCY TEXT: DAY 1 , 8, 15 Q3W?100 MILLIGRAM/SQ. METER
     Route: 042
     Dates: start: 20210525, end: 20210707
  2. ABRAXANE [Suspect]
     Active Substance: PACLITAXEL
     Dosage: FREQUENCY TEXT: DAY 1 , 8, 15 Q3W?100 MILLIGRAM/SQ. METER
     Route: 042
     Dates: start: 20210714, end: 20210714
  3. CARBOPLATIN [Suspect]
     Active Substance: CARBOPLATIN
     Indication: Squamous cell carcinoma of lung
     Dosage: DAILY DOSE : 6 ?UNIT DOSE : 6 ?MG/ML/MIN
     Route: 042
     Dates: start: 20210526, end: 20210526
  4. CARBOPLATIN [Suspect]
     Active Substance: CARBOPLATIN
     Dosage: DAILY DOSE : 6 ?UNIT DOSE : 6 ?MG/ML/MIN
     Route: 042
     Dates: start: 20210630, end: 20210630
  5. PEMBROLIZUMAB [Suspect]
     Active Substance: PEMBROLIZUMAB
     Indication: Squamous cell carcinoma of lung
     Dosage: 200 MILLIGRAM/SQ. METER
     Route: 042
     Dates: start: 20210526, end: 20210526
  6. PEMBROLIZUMAB [Suspect]
     Active Substance: PEMBROLIZUMAB
     Dosage: 200 MILLIGRAM/SQ. METER
     Route: 042
     Dates: start: 20210630, end: 20210630
  7. MEROPENEM [Suspect]
     Active Substance: MEROPENEM
     Indication: C-reactive protein increased
     Dosage: 1 GRAM
     Route: 042
     Dates: start: 20210804, end: 20210810
  8. MEROPENEM [Suspect]
     Active Substance: MEROPENEM
     Indication: Liver abscess
  9. TORSEMIDE [Concomitant]
     Active Substance: TORSEMIDE
     Indication: Prophylaxis
     Dosage: 5 MILLIGRAM, ONCE
     Route: 048
     Dates: start: 20210802, end: 20210816
  10. SODIUM PERCHLORATE [Concomitant]
     Active Substance: SODIUM PERCHLORATE
     Indication: Hyperthyroidism
     Dosage: TOTAL DAILY DOSE: 60 GTT DROPS
     Route: 048
     Dates: start: 20210807, end: 20210818
  11. LOSARTAN [Concomitant]
     Active Substance: LOSARTAN
     Indication: Hypertension
     Dosage: 25 MILLIGRAM
     Route: 048
     Dates: start: 19910110, end: 20210817
  12. TAMSULOSIN HYDROCHLORIDE [Concomitant]
     Active Substance: TAMSULOSIN HYDROCHLORIDE
     Indication: Benign prostatic hyperplasia
     Dosage: .4 MILLIGRAM
     Route: 048
     Dates: start: 20110101
  13. METOPROLOL [Concomitant]
     Active Substance: METOPROLOL
     Indication: Hypertension
     Dosage: 47.5 MILLIGRAM
     Dates: start: 20210518
  14. FLUNARIZINE [Concomitant]
     Active Substance: FLUNARIZINE
     Indication: Hypertension
     Dosage: 5 MILLIGRAM
     Dates: start: 20210525
  15. ACETAMINOPHEN [Concomitant]
     Active Substance: ACETAMINOPHEN
     Indication: Bone pain
     Dosage: 500 MILLIGRAM
     Dates: start: 20210526
  16. ATORVASTATIN [Concomitant]
     Active Substance: ATORVASTATIN
     Indication: Blood cholesterol increased
     Dosage: 10 MILLIGRAM
     Dates: start: 20210526
  17. METOCLOPRAMIDE [Concomitant]
     Active Substance: METOCLOPRAMIDE
     Indication: Prophylaxis
     Dosage: 30 MILLIGRAM
     Dates: start: 20210701
  18. APIXABAN [Concomitant]
     Active Substance: APIXABAN
     Indication: Cerebral infarction
     Dosage: 5 MILLIGRAM
     Route: 048
     Dates: start: 20210729
  19. POTASSIUM CITRATE [Concomitant]
     Active Substance: POTASSIUM CITRATE
     Indication: Blood potassium decreased
     Dosage: 5.4 MILLIGRAM
     Dates: start: 20210801
  20. VITAMIN D [Concomitant]
     Active Substance: VITAMIN D NOS
     Indication: Vitamin D decreased
     Dosage: 20 IU (INTERNATIONAL UNIT)
     Route: 042
     Dates: start: 20210802, end: 20210804
  21. FERRLECIT [Concomitant]
     Active Substance: SODIUM FERRIC GLUCONATE COMPLEX
     Indication: Anaemia
     Dosage: 62.5 MILLIGRAM
     Route: 042
     Dates: start: 20210802
  22. HUMAN RED BLOOD CELL [Concomitant]
     Active Substance: HUMAN RED BLOOD CELL
     Indication: Anaemia
     Dosage: FREQUENCY TEXT: 813 INTERVALS?300 MILLIGRAM
     Route: 042
     Dates: start: 20210803, end: 20210803
  23. VITAMIN D NOS [Concomitant]
     Active Substance: VITAMIN D NOS
     Indication: Vitamin D decreased
     Dosage: 1000 IU (INTERNATIONAL UNIT)
     Dates: start: 20210804
  24. LINEZOLID [Concomitant]
     Active Substance: LINEZOLID
     Indication: C-reactive protein increased
     Dosage: 600 MILLIGRAM
     Route: 042
     Dates: start: 20210807, end: 20210810
  25. ZOLPIDEM [Concomitant]
     Active Substance: ZOLPIDEM TARTRATE
     Indication: Sleep disorder
     Dosage: 5 MILLIGRAM
     Route: 048
     Dates: start: 20210807, end: 20210815
  26. POLYETHYLENE GLYCOLS [Concomitant]
     Active Substance: POLYETHYLENE GLYCOLS
     Indication: Constipation prophylaxis
     Dosage: 1 BAG, QD
     Route: 048
     Dates: start: 20210326
  27. SAB SIMPLEX [SIMETICONE] [Concomitant]
     Indication: Prophylaxis
     Dosage: 20 GTT DROPS, BID
     Route: 048
     Dates: start: 20210722
  28. PIPERACILLIN AND TAZOBACTAM [Concomitant]
     Active Substance: PIPERACILLIN SODIUM\TAZOBACTAM SODIUM
     Indication: C-reactive protein increased
     Dosage: 4.5 GRAM, ONCE
     Route: 042
     Dates: start: 20210803, end: 20210803

REACTIONS (1)
  - Tubulointerstitial nephritis [Not Recovered/Not Resolved]

NARRATIVE: CASE EVENT DATE: 20210816
